FAERS Safety Report 5871977-2 (Version None)
Quarter: 2008Q3

REPORT INFORMATION
  Report Type: 
  Country: None (occurrence: None)
  Receive Date: 20080905
  Receipt Date: 20080826
  Transmission Date: 20090109
  Serious: Yes (Other)
  Sender: FDA-Public Use
  Company Number: CH-WATSON-2008-05145

PATIENT
  Age: 42 Year
  Sex: Male

DRUGS (2)
  1. PREDNISOLONE ACETATE [Suspect]
     Indication: ECZEMA
     Dosage: 100 MG, UNK
  2. PREDNISOLONE ACETATE [Suspect]
     Dosage: 50 MG, UNK

REACTIONS (1)
  - ACUTE GENERALISED EXANTHEMATOUS PUSTULOSIS [None]
